FAERS Safety Report 17591754 (Version 1)
Quarter: 2020Q1

REPORT INFORMATION
  Report Type: Spontaneous
  Country: US (occurrence: US)
  Receive Date: 20200327
  Receipt Date: 20200327
  Transmission Date: 20200409
  Serious: No
  Sender: FDA-Public Use
  Company Number: US-ASTRAZENECA-2020SE41232

PATIENT
  Age: 20 Month
  Sex: Male

DRUGS (3)
  1. SYNAGIS [Suspect]
     Active Substance: PALIVIZUMAB
     Indication: PREMATURE BABY
     Route: 030
     Dates: start: 20191112
  2. SYNAGIS [Suspect]
     Active Substance: PALIVIZUMAB
     Indication: GASTROOESOPHAGEAL REFLUX DISEASE
     Route: 030
     Dates: start: 20191112
  3. SYNAGIS [Suspect]
     Active Substance: PALIVIZUMAB
     Indication: GESTATIONAL AGE TEST ABNORMAL
     Route: 030
     Dates: start: 20191112

REACTIONS (1)
  - Malaise [Unknown]

NARRATIVE: CASE EVENT DATE: 202002
